FAERS Safety Report 13433065 (Version 1)
Quarter: 2017Q2

REPORT INFORMATION
  Report Type: Spontaneous
  Country: GB (occurrence: GB)
  Receive Date: 20170412
  Receipt Date: 20170412
  Transmission Date: 20170830
  Serious: Yes (Hospitalization)
  Sender: FDA-Public Use
  Company Number: GB-PFIZER INC-2017157654

PATIENT
  Age: 21 Year
  Sex: Male
  Weight: 101 kg

DRUGS (1)
  1. AMLODIPINE BESILATE [Suspect]
     Active Substance: AMLODIPINE BESYLATE
     Dosage: 5 MG ONCE A DAY
     Dates: start: 20170326, end: 20170326

REACTIONS (1)
  - Headache [Unknown]

NARRATIVE: CASE EVENT DATE: 201703
